FAERS Safety Report 8576327-9 (Version None)
Quarter: 2012Q3

REPORT INFORMATION
  Report Type: 
  Country: None (occurrence: None)
  Receive Date: 20120724
  Receipt Date: 20120716
  Transmission Date: 20120928
  Serious: Yes (Disabling, Other)
  Sender: FDA-Public Use
  Company Number: AUR-APL-2012-03083

PATIENT
  Age: 74 Year
  Sex: Male
  Weight: 73.47 kg

DRUGS (1)
  1. CIPROFLOXACIN [Suspect]
     Indication: SURGERY
     Dosage: (300 MG),ORAL
     Route: 048
     Dates: start: 20120330, end: 20120330

REACTIONS (3)
  - VOMITING [None]
  - PAIN [None]
  - RASH GENERALISED [None]
